FAERS Safety Report 21177018 (Version 2)
Quarter: 2022Q3

REPORT INFORMATION
  Report Type: Spontaneous
  Country: US (occurrence: US)
  Receive Date: 20220805
  Receipt Date: 20220915
  Transmission Date: 20221026
  Serious: Yes (Other)
  Sender: FDA-Public Use
  Company Number: US-AMGEN-USASP2022130278

PATIENT
  Age: 47 Year
  Sex: Female
  Weight: 53.6 kg

DRUGS (2)
  1. MVASI [Suspect]
     Active Substance: BEVACIZUMAB-AWWB
     Indication: Colon cancer
     Dosage: 260 MILLIGRAM, Q2WK
     Route: 042
     Dates: start: 20210401
  2. MVASI [Suspect]
     Active Substance: BEVACIZUMAB-AWWB
     Dosage: 260 MILLIGRAM, Q2WK
     Route: 042
     Dates: start: 20220715

REACTIONS (2)
  - Tunnel vision [Unknown]
  - Blindness transient [Unknown]

NARRATIVE: CASE EVENT DATE: 20220715
